FAERS Safety Report 6333410-6 (Version None)
Quarter: 2009Q3

REPORT INFORMATION
  Report Type: 
  Country: None (occurrence: None)
  Receive Date: 20090828
  Receipt Date: 20090817
  Transmission Date: 20100115
  Serious: Yes (Other)
  Sender: FDA-Public Use
  Company Number: US-ELI_LILLY_AND_COMPANY-US200908004023

PATIENT
  Sex: Female

DRUGS (3)
  1. CYMBALTA [Suspect]
     Indication: FIBROMYALGIA
     Dosage: 30 MG, UNKNOWN
     Route: 065
     Dates: start: 20090501, end: 20090601
  2. CYMBALTA [Suspect]
     Dosage: 60 MG, UNKNOWN
     Route: 065
     Dates: start: 20090101
  3. CYMBALTA [Suspect]
     Dosage: 90 MG, UNKNOWN
     Route: 065
     Dates: start: 20090101

REACTIONS (6)
  - BLOOD PRESSURE INCREASED [None]
  - CONSTIPATION [None]
  - HEADACHE [None]
  - INTESTINAL OBSTRUCTION [None]
  - OFF LABEL USE [None]
  - SURGERY [None]
